FAERS Safety Report 19952829 (Version 1)
Quarter: 2021Q4

REPORT INFORMATION
  Report Type: Spontaneous
  Country: DE (occurrence: DE)
  Receive Date: 20211013
  Receipt Date: 20211013
  Transmission Date: 20220303
  Serious: Yes (Death, Hospitalization, Other)
  Sender: FDA-Public Use
  Company Number: DE-009507513-2109DEU004317

PATIENT
  Sex: Male
  Weight: 83 kg

DRUGS (1)
  1. KEYTRUDA [Suspect]
     Active Substance: PEMBROLIZUMAB
     Indication: Malignant melanoma stage III
     Dosage: 400 MILLIGRAM
     Route: 042
     Dates: start: 20210126

REACTIONS (20)
  - Rhabdomyolysis [Fatal]
  - Autoimmune myositis [Unknown]
  - Autoimmune hepatitis [Unknown]
  - Acute motor axonal neuropathy [Unknown]
  - General physical health deterioration [Unknown]
  - Bronchitis [Unknown]
  - Acute myocardial infarction [Unknown]
  - Hyperkalaemia [Unknown]
  - Quadriparesis [Unknown]
  - Dysarthria [Unknown]
  - Dysphagia [Unknown]
  - Chronic kidney disease [Unknown]
  - Left atrial dilatation [Unknown]
  - Hypernatraemia [Unknown]
  - Urinary tract infection [Unknown]
  - Hypertension [Unknown]
  - Depressed mood [Unknown]
  - Vitamin D deficiency [Unknown]
  - Leukocytosis [Unknown]
  - Atelectasis [Unknown]
